FAERS Safety Report 9282725 (Version 2)
Quarter: 2013Q2

REPORT INFORMATION
  Report Type: Spontaneous
  Country: US (occurrence: None)
  Receive Date: 20101119
  Receipt Date: 20130419
  Transmission Date: 20140414
  Serious: Yes (Life-Threatening)
  Sender: FDA-Public Use
  Company Number: 54973 RSAE102510EF-001

PATIENT
  Age: 2 Year
  Sex: Female

DRUGS (1)
  1. HYLAND^S TEETHING TABLETS [Suspect]
     Indication: TEETHING
     Dosage: 2  TABS  4-6  HRS  OFF/ON

REACTIONS (3)
  - Dyspnoea [None]
  - Agitation [None]
  - Poor quality sleep [None]
